FAERS Safety Report 7453203-6 (Version None)
Quarter: 2011Q2

REPORT INFORMATION
  Report Type: 
  Country: None (occurrence: None)
  Receive Date: 20110502
  Receipt Date: 20110429
  Transmission Date: 20111010
  Serious: No
  Sender: FDA-Public Use
  Company Number: US-PFIZER INC-2011093121

PATIENT
  Sex: Female
  Weight: 58.957 kg

DRUGS (1)
  1. ALAVERT [Suspect]
     Indication: SNEEZING
     Dosage: 10 MG, DAILY
     Route: 048
     Dates: start: 20110429, end: 20110429

REACTIONS (1)
  - DRUG INEFFECTIVE [None]
